FAERS Safety Report 4386600-6 (Version None)
Quarter: 2004Q2

REPORT INFORMATION
  Report Type: 
  Country: None (occurrence: None)
  Receive Date: 20040629
  Receipt Date: 20040624
  Transmission Date: 20050107
  Serious: Yes (Hospitalization)
  Sender: FDA-Public Use
  Company Number: US-GLAXOSMITHKLINE-A0515899A

PATIENT
  Age: 66 Year
  Sex: Female

DRUGS (7)
  1. ADVAIR HFA [Suspect]
     Indication: ASTHMA
     Dosage: 1PUFF TWICE PER DAY
     Route: 055
     Dates: start: 20020801
  2. GLUCOPHAGE XR [Concomitant]
  3. LESCOL [Concomitant]
  4. ACTOS [Concomitant]
  5. PRINIVIL [Concomitant]
  6. VIOXX [Concomitant]
  7. ALBUTEROL [Concomitant]

REACTIONS (5)
  - DYSPNOEA [None]
  - FATIGUE [None]
  - FEELING ABNORMAL [None]
  - LOSS OF CONSCIOUSNESS [None]
  - VIRAL INFECTION [None]
